FAERS Safety Report 18205929 (Version 17)
Quarter: 2021Q2

REPORT INFORMATION
  Report Type: Report from Study
  Country: CN (occurrence: CN)
  Receive Date: 20200828
  Receipt Date: 20210610
  Transmission Date: 20210717
  Serious: Yes (Death, Hospitalization)
  Sender: FDA-Public Use
  Company Number: CN-ROCHE-2664760

PATIENT
  Age: 69 Year
  Sex: Male
  Weight: 61 kg

DRUGS (43)
  1. ASPIRIN. [Concomitant]
     Active Substance: ASPIRIN
     Dates: start: 20200805, end: 20200823
  2. LOSARTAN POTASSIUM. [Concomitant]
     Active Substance: LOSARTAN POTASSIUM
     Indication: HYPERTENSION
     Dates: start: 2006, end: 20200823
  3. OXYCODONE;PARACETAMOL [Concomitant]
     Active Substance: ACETAMINOPHEN\OXYCODONE HYDROCHLORIDE
     Indication: CANCER PAIN
     Dates: start: 20200812, end: 20200823
  4. ALBURX [Concomitant]
     Active Substance: ALBUMIN HUMAN
     Dates: start: 20200822, end: 20200822
  5. LOBELINE HYDROCHLORIDE. [Concomitant]
     Active Substance: LOBELINE HYDROCHLORIDE
     Dates: start: 20200823, end: 20200823
  6. SIMVASTATIN. [Concomitant]
     Active Substance: SIMVASTATIN
     Indication: CORONARY ARTERY DISEASE
     Dates: start: 2006, end: 20200823
  7. ASPIRIN. [Concomitant]
     Active Substance: ASPIRIN
     Indication: CORONARY ARTERY DISEASE
     Dates: start: 20200622, end: 20200727
  8. SOLIFENACIN [Concomitant]
     Active Substance: SOLIFENACIN
     Indication: PAIN IN EXTREMITY
  9. RECOMBINANT HUMAN GRANULOCYTE STIMULATING FACTOR (UNK INGREDIENTS) [Concomitant]
     Dates: start: 20200822, end: 20200822
  10. LIDOCAINE. [Concomitant]
     Active Substance: LIDOCAINE
     Dates: start: 20200730, end: 20200730
  11. EPINEPHRINE HYDROCHLORIDE. [Concomitant]
     Active Substance: EPINEPHRINE HYDROCHLORIDE
     Dates: start: 20200823, end: 20200823
  12. OXYCODONE AND ACETAMINOPHEN [Concomitant]
     Active Substance: ACETAMINOPHEN\OXYCODONE HYDROCHLORIDE
     Indication: CANCER PAIN
     Dates: start: 20200812, end: 20200813
  13. TROPISETRON HYDROCHLORIDE [Concomitant]
     Active Substance: TROPISETRON HYDROCHLORIDE
     Indication: VOMITING
     Dates: start: 20200813, end: 20200813
  14. OMEPRAZOLE. [Concomitant]
     Active Substance: OMEPRAZOLE
     Indication: GASTRIC ULCER
     Dates: start: 202004, end: 20200823
  15. ATEZOLIZUMAB. [Suspect]
     Active Substance: ATEZOLIZUMAB
     Indication: NON-SMALL CELL LUNG CANCER
     Dosage: ON 13/AUG/2020, HE HAD LAST DOSE OF ATEZOLIZUMAB PRIOR TO AE OR SAE ONSET.
     Route: 041
     Dates: start: 20200813
  16. BEVACIZUMAB. [Suspect]
     Active Substance: BEVACIZUMAB
     Indication: NON-SMALL CELL LUNG CANCER
     Dosage: ON 13/AUG/2020 HE HAD HIS LAST DOSE OF BEVACIZUMAB 920 MG PRIOR TO AE/SAE ONSET.
     Route: 042
     Dates: start: 20200813
  17. SOLIFENACIN [Concomitant]
     Active Substance: SOLIFENACIN
     Indication: OEDEMA PERIPHERAL
     Dates: start: 202006, end: 20200811
  18. HYDROXYETHYL STARCH AND SODIUM CHLORIDE [Concomitant]
     Dates: start: 20200823, end: 20200823
  19. ATROPINE SULFATE. [Concomitant]
     Active Substance: ATROPINE SULFATE
     Dates: start: 20200823, end: 20200823
  20. IBUPROFEN. [Concomitant]
     Active Substance: IBUPROFEN
     Indication: OEDEMA PERIPHERAL
     Dates: start: 202006, end: 20200811
  21. MORPHINE HYDROCHLORIDE [Concomitant]
     Active Substance: MORPHINE HYDROCHLORIDE
     Indication: CANCER PAIN
     Dates: start: 20200812, end: 20200812
  22. CARBOPLATIN. [Suspect]
     Active Substance: CARBOPLATIN
     Indication: NON-SMALL CELL LUNG CANCER
     Dosage: 6 MG/ML/MIN?ON 13/AUG/2020, HE HAD HIS LAST DOSE OF CARBOPLATIN 800 MG PRIOR TO AE/SAE ONSET.
     Route: 042
     Dates: start: 20200813
  23. NIKETHAMIDE [Concomitant]
     Active Substance: NIKETHAMIDE
     Dates: start: 20200823, end: 20200823
  24. AMBROXOL HYDROCHLORIDE [Concomitant]
     Active Substance: AMBROXOL HYDROCHLORIDE
     Dates: start: 20200823, end: 20200823
  25. FOLIC ACID. [Concomitant]
     Active Substance: FOLIC ACID
     Dates: start: 20200723, end: 20200823
  26. LACTULOSE. [Concomitant]
     Active Substance: LACTULOSE
     Indication: CONSTIPATION
     Route: 048
     Dates: start: 20200814, end: 20200818
  27. RECOMBINANT HUMAN THROMBOPOIETIN [Concomitant]
     Active Substance: THROMBOPOIETIN
     Dates: start: 20200822, end: 20200822
  28. SODIUM BICARBONATE. [Concomitant]
     Active Substance: SODIUM BICARBONATE
     Dates: start: 20200823, end: 20200823
  29. DEXAMETHASONE ACETATE [Concomitant]
     Active Substance: DEXAMETHASONE ACETATE
     Indication: VOMITING
     Dosage: TABLET
     Route: 048
     Dates: start: 20200812, end: 20200814
  30. IPRATROPIUM BROMIDE. [Concomitant]
     Active Substance: IPRATROPIUM BROMIDE
     Indication: NEOPLASM
     Dates: start: 20200815, end: 20200815
  31. VITAMINE B12 [Concomitant]
     Active Substance: CYANOCOBALAMIN
     Indication: PROPHYLAXIS
     Dates: start: 20200813, end: 20200813
  32. ISOSORBIDE MONONITRATE. [Concomitant]
     Active Substance: ISOSORBIDE MONONITRATE
     Indication: CORONARY ARTERY DISEASE
     Dates: start: 2006, end: 20200823
  33. ATENOLOL. [Concomitant]
     Active Substance: ATENOLOL
     Indication: CORONARY ARTERY DISEASE
     Dates: start: 2006, end: 20200823
  34. ASPIRIN. [Concomitant]
     Active Substance: ASPIRIN
     Indication: CORONARY ARTERY DISEASE
     Dosage: NO
     Dates: start: 2003, end: 20200823
  35. DILTIAZEM HYDROCHLORIDE. [Concomitant]
     Active Substance: DILTIAZEM HYDROCHLORIDE
     Indication: HYPERTENSION
     Dates: start: 2006, end: 20200823
  36. DOPAMINE HYDROCHLORIDE. [Concomitant]
     Active Substance: DOPAMINE HYDROCHLORIDE
     Dates: start: 20200823, end: 20200823
  37. IBUPROFEN. [Concomitant]
     Active Substance: IBUPROFEN
     Indication: CANCER PAIN
     Dates: start: 20200812, end: 20200812
  38. PEMETREXED. [Suspect]
     Active Substance: PEMETREXED
     Indication: NON-SMALL CELL LUNG CANCER
     Dosage: ON 13/AUG/2020, HE HAD HIS LAST DOSE OF PEMETREXED 850 MG PRIOR TO AE/SAE ONSET.
     Route: 042
     Dates: start: 20200813
  39. REBAMIPIDE [Concomitant]
     Active Substance: REBAMIPIDE
     Indication: GASTRIC ULCER
     Dates: start: 2020, end: 20200823
  40. HEMOCOAGULASE BOTHROPS ATROX [Concomitant]
     Dates: start: 20200823, end: 20200823
  41. OXYCODONE HYDROCHLORIDE. [Concomitant]
     Active Substance: OXYCODONE HYDROCHLORIDE
     Indication: CANCER PAIN
     Dates: start: 20200813, end: 20200818
  42. GLYCERINE [Concomitant]
     Active Substance: GLYCERIN
     Indication: CONSTIPATION
     Dosage: ENEMA
     Dates: start: 20200814, end: 20200823
  43. BUDESONIDE. [Concomitant]
     Active Substance: BUDESONIDE
     Indication: NEOPLASM
     Dates: start: 20200815, end: 20200815

REACTIONS (2)
  - Myelosuppression [Not Recovered/Not Resolved]
  - Septic shock [Fatal]

NARRATIVE: CASE EVENT DATE: 20200822
